FAERS Safety Report 25335856 (Version 1)
Quarter: 2025Q2

REPORT INFORMATION
  Report Type: Spontaneous
  Country: CH (occurrence: CH)
  Receive Date: 20250520
  Receipt Date: 20250520
  Transmission Date: 20250717
  Serious: Yes (Other)
  Sender: AMGEN
  Company Number: CH-AMGEN-CHESP2025094802

PATIENT

DRUGS (1)
  1. ADALIMUMAB [Suspect]
     Active Substance: ADALIMUMAB
     Indication: Uveitis
     Route: 065

REACTIONS (12)
  - Glaucoma [Unknown]
  - Vitreous haemorrhage [Unknown]
  - Macular oedema [Unknown]
  - Optic atrophy [Unknown]
  - Retinal neovascularisation [Unknown]
  - Cataract [Unknown]
  - Pseudopapilloedema [Unknown]
  - Keratopathy [Unknown]
  - Epiretinal membrane [Unknown]
  - Maculopathy [Unknown]
  - Amblyopia [Unknown]
  - Refraction disorder [Unknown]
